FAERS Safety Report 7389518-X (Version None)
Quarter: 2011Q2

REPORT INFORMATION
  Report Type: 
  Country: None (occurrence: None)
  Receive Date: 20110401
  Receipt Date: 20110321
  Transmission Date: 20111010
  Serious: Yes (Hospitalization, Other)
  Sender: FDA-Public Use
  Company Number: PHHY2011CA03044

PATIENT
  Sex: Female

DRUGS (5)
  1. SANDOSTATIN [Suspect]
     Indication: PITUITARY-DEPENDENT CUSHING'S SYNDROME
     Dosage: 300 MCQ
     Route: 058
     Dates: start: 20110101
  2. SANDOSTATIN [Suspect]
     Dosage: 50 UG, Q8H
     Route: 058
  3. SANDOSTATIN LAR [Suspect]
     Indication: PITUITARY-DEPENDENT CUSHING'S SYNDROME
     Dosage: 10 MG EVERY 4 WEEKS
     Route: 030
  4. SANDOSTATIN LAR [Suspect]
     Indication: PITUITARY TUMOUR BENIGN
     Dosage: 20 MG EVERY 04 WEEKS
     Route: 030
     Dates: start: 20110112
  5. SANDOSTATIN [Suspect]
     Dosage: 100 UG DAILY
     Route: 058

REACTIONS (11)
  - WHITE BLOOD CELL COUNT INCREASED [None]
  - VOMITING [None]
  - FREQUENT BOWEL MOVEMENTS [None]
  - MYOCLONUS [None]
  - HYPERHIDROSIS [None]
  - HYPOTENSION [None]
  - INFLUENZA [None]
  - FALL [None]
  - HEART RATE DECREASED [None]
  - HEADACHE [None]
  - DIZZINESS [None]
